FAERS Safety Report 12351192 (Version 1)
Quarter: 2016Q2

REPORT INFORMATION
  Report Type: Spontaneous
  Country: US (occurrence: None)
  Receive Date: 20160509
  Receipt Date: 20160509
  Transmission Date: 20160815
  Serious: Yes (Disabling)
  Sender: FDA-Public Use
  Company Number: None

PATIENT
  Age: 47 Year
  Sex: Female
  Weight: 58.97 kg

DRUGS (5)
  1. NASONEX [Concomitant]
     Active Substance: MOMETASONE FUROATE
  2. ALLEGRA [Concomitant]
     Active Substance: FEXOFENADINE HYDROCHLORIDE
  3. ONE-A-DAY WOMEN^S MULTIVITAMINS [Concomitant]
  4. BUPROPION HCL XL TABS 300MG, 300 MG [Suspect]
     Active Substance: BUPROPION HYDROCHLORIDE
     Indication: DEPRESSION
     Route: 048
  5. BUPROPION XL [Concomitant]
     Active Substance: BUPROPION

REACTIONS (6)
  - Insomnia [None]
  - Drug effect decreased [None]
  - Depression [None]
  - Tinnitus [None]
  - Rebound effect [None]
  - Product substitution issue [None]

NARRATIVE: CASE EVENT DATE: 20160201
